FAERS Safety Report 9580518 (Version 4)
Quarter: 2013Q4

REPORT INFORMATION
  Report Type: Report from Study
  Country: CA (occurrence: CA)
  Receive Date: 20131002
  Receipt Date: 20131218
  Transmission Date: 20140711
  Serious: Yes (Other)
  Sender: FDA-Public Use
  Company Number: CA-ALEXION PHARMACEUTICALS INC.-A201302522

PATIENT
  Age: 36 Year
  Sex: Female
  Weight: 53 kg

DRUGS (5)
  1. SOLIRIS [Suspect]
     Indication: PAROXYSMAL NOCTURNAL HAEMOGLOBINURIA
     Dosage: 600 MG, QW
     Route: 042
     Dates: start: 20101229, end: 20111114
  2. SOLIRIS [Suspect]
     Dosage: 900 MG, Q2W
     Route: 042
     Dates: start: 20110121
  3. FOLIC ACID [Concomitant]
     Indication: SUPPLEMENTATION THERAPY
     Dosage: 5 MG, QD
     Route: 048
  4. VITAMIN B12 [Concomitant]
     Indication: SUPPLEMENTATION THERAPY
     Dosage: 1000 MCG, QD
     Route: 048
  5. SERC [Concomitant]
     Indication: VERTIGO
     Dosage: 16 MG, PRN UP TO 3X/DAY
     Route: 048
     Dates: start: 201207

REACTIONS (2)
  - Hypotension [Not Recovered/Not Resolved]
  - Blood potassium decreased [Recovered/Resolved]
